FAERS Safety Report 10258719 (Version 2)
Quarter: 2014Q2

REPORT INFORMATION
  Report Type: Spontaneous
  Country: US (occurrence: US)
  Receive Date: 20140625
  Receipt Date: 20140625
  Transmission Date: 20141212
  Serious: No
  Sender: FDA-Public Use
  Company Number: US-ASTELLAS-2013US009965

PATIENT
  Age: 49 Year
  Sex: Female

DRUGS (1)
  1. VESICARE [Suspect]
     Indication: URINARY INCONTINENCE
     Route: 048
     Dates: start: 201303, end: 20130915

REACTIONS (4)
  - Dry eye [Unknown]
  - Somnolence [Unknown]
  - Headache [Unknown]
  - Vision blurred [Unknown]
